FAERS Safety Report 6721215-3 (Version None)
Quarter: 2010Q2

REPORT INFORMATION
  Report Type: 
  Country: None (occurrence: None)
  Receive Date: 20100512
  Receipt Date: 20100512
  Transmission Date: 20101027
  Serious: Yes (Hospitalization, Other)
  Sender: FDA-Public Use
  Company Number: None

PATIENT
  Age: 7 Year
  Sex: Male
  Weight: 40.8237 kg

DRUGS (2)
  1. CHILDREN'S TYLENOL [Suspect]
     Indication: PYREXIA
     Dosage: 15ML 3 TIMES PER DAY PO
     Route: 048
     Dates: start: 20091217, end: 20100501
  2. CHILDREN'S MOTRIN [Suspect]
     Dosage: 15ML 2 TIMES PER DAY PO
     Route: 048

REACTIONS (11)
  - ABDOMINAL DISCOMFORT [None]
  - ASPIRATION [None]
  - COUGH [None]
  - NIGHT SWEATS [None]
  - OROPHARYNGEAL PAIN [None]
  - PRODUCT CONTAMINATION MICROBIAL [None]
  - PRODUCT QUALITY ISSUE [None]
  - PYREXIA [None]
  - QUALITY OF LIFE DECREASED [None]
  - RESPIRATORY ARREST [None]
  - RESTLESSNESS [None]
